FAERS Safety Report 19579302 (Version 1)
Quarter: 2021Q3

REPORT INFORMATION
  Report Type: Spontaneous
  Country: FR (occurrence: FR)
  Receive Date: 20210719
  Receipt Date: 20210719
  Transmission Date: 20211014
  Serious: Yes (Death)
  Sender: FDA-Public Use
  Company Number: FR-ANIPHARMA-2021-FR-000150

PATIENT
  Age: 69 Year
  Sex: Female

DRUGS (6)
  1. KARDEGIC [Suspect]
     Active Substance: ASPIRIN DL-LYSINE
     Dosage: 75 MG QD
     Route: 048
     Dates: end: 20210522
  2. CANDESARTAN CILEXETIL. [Suspect]
     Active Substance: CANDESARTAN CILEXETIL
     Indication: HYPERTENSION
     Dosage: UNKNOWN DOSE AND FREQUENCY
     Route: 048
     Dates: end: 20210522
  3. HYDROCHLOROTHIAZIDE. [Suspect]
     Active Substance: HYDROCHLOROTHIAZIDE
     Dosage: UNKNOWN DOSE AND FREQUENCY
     Route: 048
     Dates: end: 20210522
  4. ATORVASTATINE [Suspect]
     Active Substance: ATORVASTATIN
     Dosage: 10 MG QD
     Route: 048
     Dates: end: 20210522
  5. GLIMEPIRIDE. [Suspect]
     Active Substance: GLIMEPIRIDE
     Dosage: 5 MG QD
     Route: 048
     Dates: end: 20210522
  6. JANUMET [Suspect]
     Active Substance: METFORMIN HYDROCHLORIDE\SITAGLIPTIN PHOSPHATE
     Dosage: UNKNOWN DOSE DAILY
     Route: 048
     Dates: end: 20210522

REACTIONS (2)
  - Hypoglycaemia [Fatal]
  - Metabolic encephalopathy [Fatal]

NARRATIVE: CASE EVENT DATE: 20210522
